FAERS Safety Report 7100960-4 (Version None)
Quarter: 2010Q4

REPORT INFORMATION
  Report Type: 
  Country: None (occurrence: None)
  Receive Date: 20101113
  Receipt Date: 20100405
  Transmission Date: 20110411
  Serious: No
  Sender: FDA-Public Use
  Company Number: US-ALLERGAN-1004445US

PATIENT
  Sex: Male

DRUGS (2)
  1. BOTOX COSMETIC [Suspect]
     Indication: SKIN WRINKLING
     Dosage: 14 UNITS, SINGLE
     Route: 030
     Dates: start: 20100303, end: 20100303
  2. BOTOX COSMETIC [Suspect]
     Dosage: 19 UNITS, UNK
     Route: 030
     Dates: start: 20100322, end: 20100322

REACTIONS (1)
  - EYELID PTOSIS [None]
